FAERS Safety Report 6556893-5 (Version None)
Quarter: 2010Q1

REPORT INFORMATION
  Report Type: 
  Country: None (occurrence: None)
  Receive Date: 20100126
  Receipt Date: 20091217
  Transmission Date: 20100710
  Serious: Yes (Other)
  Sender: FDA-Public Use
  Company Number: 003530

PATIENT
  Sex: Male
  Weight: 90 kg

DRUGS (3)
  1. KEPPRA [Suspect]
     Indication: EPILEPSY
     Dosage: 1500 MG QD ORAL
     Route: 048
     Dates: start: 20070906, end: 20090408
  2. LOGIMAX (LOGIMAX (NOT SPECIFIED) [Suspect]
     Indication: HYPERTENSION
     Dosage: 50-100 MG PER DAY ORAL
     Route: 048
     Dates: start: 20070901
  3. SORTIS /01326101/ [Concomitant]

REACTIONS (6)
  - AGORAPHOBIA [None]
  - DIZZINESS [None]
  - DRUG INEFFECTIVE [None]
  - DYSLIPIDAEMIA [None]
  - HYPERTENSION [None]
  - VERTIGO [None]
